FAERS Safety Report 14518860 (Version 4)
Quarter: 2018Q2

REPORT INFORMATION
  Report Type: Spontaneous
  Country: US (occurrence: US)
  Receive Date: 20180212
  Receipt Date: 20180422
  Transmission Date: 20180711
  Serious: No
  Sender: FDA-Public Use
  Company Number: US-APOTEX-2017AP007866

PATIENT
  Sex: Female

DRUGS (1)
  1. CETIRIZINE [Suspect]
     Active Substance: CETIRIZINE HYDROCHLORIDE
     Indication: SKIN INFECTION
     Route: 065

REACTIONS (1)
  - Dehydration [Unknown]
